FAERS Safety Report 5971623-3 (Version None)
Quarter: 2008Q4

REPORT INFORMATION
  Report Type: 
  Country: None (occurrence: None)
  Receive Date: 20081201
  Receipt Date: 20081127
  Transmission Date: 20090506
  Serious: Yes (Other)
  Sender: FDA-Public Use
  Company Number: GR-JNJFOC-20081106422

PATIENT
  Sex: Male
  Weight: 52 kg

DRUGS (2)
  1. ALOPERIDIN [Suspect]
     Indication: HYPERMOBILITY SYNDROME
     Route: 048
  2. ALOPERIDIN [Suspect]
     Indication: ANXIETY
     Route: 048

REACTIONS (4)
  - COMMUNICATION DISORDER [None]
  - FATIGUE [None]
  - LETHARGY [None]
  - TREMOR [None]
